FAERS Safety Report 6073988-3 (Version None)
Quarter: 2009Q1

REPORT INFORMATION
  Report Type: 
  Country: None (occurrence: None)
  Receive Date: 20090209
  Receipt Date: 20090209
  Transmission Date: 20090719
  Serious: Yes (Other)
  Sender: FDA-Public Use
  Company Number: None

PATIENT
  Sex: Male
  Weight: 79.3795 kg

DRUGS (1)
  1. CYMBALTA [Suspect]
     Indication: ANXIETY
     Dosage: 1 PER DAY PO
     Route: 048
     Dates: start: 20080827, end: 20090206

REACTIONS (12)
  - ACTIVITIES OF DAILY LIVING IMPAIRED [None]
  - DECREASED INTEREST [None]
  - DIZZINESS [None]
  - EXCESSIVE EYE BLINKING [None]
  - EXERCISE LACK OF [None]
  - FEELING ABNORMAL [None]
  - IRRITABILITY [None]
  - LIBIDO DECREASED [None]
  - PARAESTHESIA [None]
  - SOCIAL PROBLEM [None]
  - VERTIGO [None]
  - WITHDRAWAL SYNDROME [None]
